FAERS Safety Report 8815554 (Version 1)
Quarter: 2012Q4

REPORT INFORMATION
  Report Type: 
  Country: JP (occurrence: JP)
  Receive Date: 20120928
  Receipt Date: 20120928
  Transmission Date: 20130627
  Serious: Yes (Hospitalization)
  Sender: FDA-Public Use
  Company Number: PHHY2012JP049603

PATIENT
  Age: 81 Year
  Sex: Male

DRUGS (4)
  1. GLIVEC [Suspect]
     Indication: CHRONIC MYELOID LEUKAEMIA
     Dosage: 400 mg, Daily
     Route: 048
     Dates: start: 200205
  2. GLIVEC [Suspect]
     Dosage: 400 mg, Daily
     Route: 048
     Dates: start: 2002
  3. PREDNISOLONE [Suspect]
     Dosage: 10 mg, Daily
     Route: 048
     Dates: start: 200303, end: 200802
  4. HYDREA [Concomitant]
     Route: 048

REACTIONS (4)
  - Liver abscess [Unknown]
  - Rash generalised [Unknown]
  - Malaise [Unknown]
  - Oedema [Unknown]
